FAERS Safety Report 5066502-2 (Version None)
Quarter: 2006Q3

REPORT INFORMATION
  Report Type: 
  Country: None (occurrence: None)
  Receive Date: 20060801
  Receipt Date: 20050712
  Transmission Date: 20061208
  Serious: Yes (Death, Hospitalization)
  Sender: FDA-Public Use
  Company Number: US-BRISTOL-MYERS SQUIBB COMPANY-13035084

PATIENT
  Age: 54 Year
  Sex: Female

DRUGS (2)
  1. IXABEPILONE [Suspect]
     Indication: BREAST CANCER
     Dosage: INITIAL TX DATE: 02-MAY-05.
     Route: 042
     Dates: start: 20050613, end: 20050613
  2. CAPECITABINE [Suspect]
     Indication: BREAST CANCER
     Dosage: INITIAL TX DATE: 02-MAY-05.
     Route: 048
     Dates: end: 20050627

REACTIONS (3)
  - MALIGNANT NEOPLASM PROGRESSION [None]
  - PLEURAL EFFUSION [None]
  - PNEUMONITIS [None]
